FAERS Safety Report 5429086-2 (Version None)
Quarter: 2007Q3

REPORT INFORMATION
  Report Type: 
  Country: None (occurrence: None)
  Receive Date: 20070824
  Receipt Date: 20070813
  Transmission Date: 20080115
  Serious: Yes (Other)
  Sender: FDA-Public Use
  Company Number: 100#03#2007-03069

PATIENT
  Age: 73 Year
  Sex: Female

DRUGS (4)
  1. PRAVASTATIN [Suspect]
     Indication: BLOOD CHOLESTEROL INCREASED
     Dosage: 10 MG, ORAL
     Route: 048
     Dates: start: 20070727, end: 20070727
  2. ATENOLOL [Concomitant]
  3. SIMVASTATIN [Concomitant]
  4. ZOPICLONE (ZOPICLONE) (ZOPICLONE) [Concomitant]

REACTIONS (2)
  - ABDOMINAL PAIN [None]
  - ILEUS [None]
